FAERS Safety Report 8914173 (Version 2)
Quarter: 2013Q1

REPORT INFORMATION
  Report Type: Spontaneous
  Country: US (occurrence: None)
  Receive Date: 20121114
  Receipt Date: 20121123
  Transmission Date: 20140127
  Serious: Yes (Hospitalization)
  Sender: FDA-Public Use
  Company Number: UTC-025014

PATIENT
  Age: 55 Year
  Sex: Male
  Weight: 99.09 kg

DRUGS (1)
  1. REMODULIN [Suspect]
     Indication: PULMONARY ARTERIAL HYPERTENSION
     Dosage: (0.03 UG/KG, 1 IN 1 MIN)
     Route: 058
     Dates: start: 20110510

REACTIONS (3)
  - Wound infection [None]
  - Renal failure chronic [None]
  - Diabetic neuropathy [None]
